FAERS Safety Report 11278498 (Version 1)
Quarter: 2015Q3

REPORT INFORMATION
  Report Type: Not Available
  Country: US (occurrence: US)
  Receive Date: 20150717
  Receipt Date: 20150717
  Transmission Date: 20151125
  Serious: No
  Sender: FDA-Public Use
  Company Number: US-LUPIN PHARMACEUTICALS INC.-E2B_00003761

PATIENT
  Sex: Male
  Weight: 72.64 kg

DRUGS (2)
  1. RAMIPRIL CAPSULES USP 5 MG [Suspect]
     Active Substance: RAMIPRIL
     Indication: CARDIAC FAILURE CONGESTIVE
     Dates: start: 20150501, end: 20150508
  2. METOPROLOL SUCCINATE. [Concomitant]
     Active Substance: METOPROLOL SUCCINATE
     Indication: CARDIAC FAILURE CONGESTIVE

REACTIONS (7)
  - Dysgeusia [Recovered/Resolved]
  - Dyspnoea [Recovering/Resolving]
  - Ageusia [Recovering/Resolving]
  - Dry mouth [Not Recovered/Not Resolved]
  - Swollen tongue [Recovered/Resolved]
  - Heart rate increased [Recovering/Resolving]
  - Decreased appetite [Recovering/Resolving]
